FAERS Safety Report 22122696 (Version 1)
Quarter: 2023Q1

REPORT INFORMATION
  Report Type: Spontaneous
  Country: GB (occurrence: GB)
  Receive Date: 20230321
  Receipt Date: 20230321
  Transmission Date: 20230417
  Serious: Yes (Death, Hospitalization, Other)
  Sender: FDA-Public Use
  Company Number: None

PATIENT
  Age: 43 Year
  Sex: Female
  Weight: 43 kg

DRUGS (23)
  1. KALETRA [Suspect]
     Active Substance: LOPINAVIR\RITONAVIR
     Indication: HIV infection
     Dosage: ALUVIA
     Dates: start: 20100610
  2. KALETRA [Suspect]
     Active Substance: LOPINAVIR\RITONAVIR
     Indication: HIV infection
     Dosage: UNK
     Route: 048
  3. EMTRICITABINE [Suspect]
     Active Substance: EMTRICITABINE
     Indication: Supplementation therapy
     Dosage: UNK
     Route: 065
  4. EMTRICITABINE [Suspect]
     Active Substance: EMTRICITABINE
     Indication: Supplementation therapy
     Dosage: 1 DOSAGE FORM, QD  (1 TABLET/CAPSULE DAILY)
     Route: 048
     Dates: start: 20170610, end: 20180205
  5. EMTRICITABINE [Suspect]
     Active Substance: EMTRICITABINE
     Indication: Supplementation therapy
     Dosage: 1 DF, QD; 1ST TRIMESTER
     Route: 048
  6. EMTRICITABINE [Suspect]
     Active Substance: EMTRICITABINE
     Indication: Supplementation therapy
     Dosage: 1 DF, QD (1 TABLET/CAPSULE, DAILY)
     Route: 065
     Dates: start: 20180205, end: 20180205
  7. FOLATE SODIUM [Suspect]
     Active Substance: FOLATE SODIUM
     Indication: Supplementation therapy
     Dosage: 1DOSAGE FORM, QD/?FIRST ADMIN DATE: 18- FEB-2018
     Route: 048
  8. ZIDOVUDINE [Suspect]
     Active Substance: ZIDOVUDINE
     Indication: Antiviral treatment
     Dosage: 800 MILLIGRAM, QD
     Route: 048
     Dates: start: 20100610, end: 20100610
  9. ZIDOVUDINE [Suspect]
     Active Substance: ZIDOVUDINE
     Indication: Antiviral treatment
     Dosage: 600 MILLIGRAM, QD, UNK
     Route: 048
     Dates: start: 20090110, end: 20100610
  10. ZIDOVUDINE [Suspect]
     Active Substance: ZIDOVUDINE
     Indication: Antiviral treatment
     Dosage: 800 MILLIGRAM, QD
     Route: 048
     Dates: start: 20090610, end: 20100610
  11. EFAVIRENZ [Suspect]
     Active Substance: EFAVIRENZ
     Indication: HIV infection
     Dosage: 1 DOSAGE FORM, QD, 1 TABLET/CAPSULE, DAILY
     Route: 048
     Dates: start: 20171006, end: 20180205
  12. EFAVIRENZ [Suspect]
     Active Substance: EFAVIRENZ
     Indication: HIV infection
     Dosage: 1 DOSAGE FORM, QD
     Route: 048
     Dates: start: 20180205
  13. RITONAVIR [Suspect]
     Active Substance: RITONAVIR
     Indication: HIV infection
     Dosage: UNK
     Route: 065
  14. RITONAVIR [Suspect]
     Active Substance: RITONAVIR
     Indication: HIV infection
     Dosage: UNK
     Route: 048
     Dates: start: 20100610
  15. RITONAVIR [Suspect]
     Active Substance: RITONAVIR
     Indication: HIV infection
     Dosage: UNK
     Route: 048
  16. LOPINAVIR\RITONAVIR [Suspect]
     Active Substance: LOPINAVIR\RITONAVIR
     Indication: HIV infection
     Dosage: 1 DOSAGE FORM, QD
     Route: 048
     Dates: start: 20100610, end: 20220610
  17. TRUVADA [Suspect]
     Active Substance: EMTRICITABINE\TENOFOVIR DISOPROXIL FUMARATE
     Indication: Supplementation therapy
     Dosage: 1 DF FORM, QD;1 TABLET/CAPSULE, QD
     Route: 048
     Dates: start: 20180205
  18. TRUVADA [Suspect]
     Active Substance: EMTRICITABINE\TENOFOVIR DISOPROXIL FUMARATE
     Indication: Supplementation therapy
     Dosage: 1 DF,1 TABLET, QD (REPORTED TWICE)
     Route: 048
     Dates: start: 20171006, end: 20180205
  19. EMTRICITABINE\TENOFOVIR [Suspect]
     Active Substance: EMTRICITABINE\TENOFOVIR
     Indication: HIV infection
     Dosage: 1 DF, QD
     Route: 065
     Dates: start: 20171006
  20. EMTRICITABINE\TENOFOVIR [Suspect]
     Active Substance: EMTRICITABINE\TENOFOVIR
     Indication: HIV infection
     Dosage: 1 DF, QD
     Route: 065
     Dates: start: 20180205
  21. KALETRA [Suspect]
     Active Substance: LOPINAVIR\RITONAVIR
     Indication: HIV infection
     Dosage: 1 DOSAGE FORM
     Route: 048
     Dates: start: 20100610
  22. KALETRA [Suspect]
     Active Substance: LOPINAVIR\RITONAVIR
     Indication: HIV infection
     Dosage: 1 DOSAGE FORM
     Route: 065
  23. KALETRA [Suspect]
     Active Substance: LOPINAVIR\RITONAVIR
     Indication: HIV infection
     Dosage: 1 DOSAGE FORM, QD
     Route: 048
     Dates: start: 20100610, end: 20100610

REACTIONS (6)
  - Aspartate aminotransferase increased [Fatal]
  - Maternal exposure during pregnancy [Unknown]
  - Off label use [Unknown]
  - Drug abuse [Unknown]
  - Abortion spontaneous [Fatal]
  - Alanine aminotransferase increased [Fatal]

NARRATIVE: CASE EVENT DATE: 20120521
